FAERS Safety Report 22112086 (Version 5)
Quarter: 2023Q2

REPORT INFORMATION
  Report Type: Spontaneous
  Country: HR (occurrence: HR)
  Receive Date: 20230318
  Receipt Date: 20230415
  Transmission Date: 20230722
  Serious: Yes (Death, Other)
  Sender: FDA-Public Use
  Company Number: HR-002147023-NVSC2023HR062599

PATIENT
  Sex: Female
  Weight: 72 kg

DRUGS (11)
  1. ZIEXTENZO [Suspect]
     Active Substance: PEGFILGRASTIM-BMEZ
     Indication: Diffuse large B-cell lymphoma
     Dosage: UNK, GIVEN AT RIGHT UPPER ARM
     Route: 058
     Dates: start: 20230313, end: 20230313
  2. DIGOXIN [Concomitant]
     Active Substance: DIGOXIN
     Indication: Product used for unknown indication
     Dosage: UNK
     Route: 065
  3. AMLODIPINE BESYLATE\INDAPAMIDE\PERINDOPRIL ARGININE [Concomitant]
     Active Substance: AMLODIPINE BESYLATE\INDAPAMIDE\PERINDOPRIL ARGININE
     Indication: Angina pectoris
     Dosage: 1 DOSAGE FORM (IN THE MORNING)
     Route: 065
  4. CARVEDILOL [Concomitant]
     Active Substance: CARVEDILOL
     Indication: Angina pectoris
     Dosage: 2 DOSAGE FORM, QD
     Route: 065
  5. CONTROLOC [Concomitant]
     Active Substance: PANTOPRAZOLE SODIUM
     Indication: Gastritis
     Dosage: 1 DOSAGE FORM (IN THE MORNING ON EMPTY STOMACH)
     Route: 065
  6. CONTROLOC [Concomitant]
     Active Substance: PANTOPRAZOLE SODIUM
     Indication: Duodenitis
  7. ATORVASTATIN [Concomitant]
     Active Substance: ATORVASTATIN
     Indication: Type 2 diabetes mellitus
     Dosage: 1 DOSAGE FORM, QD
     Route: 065
  8. NORMABEL [Concomitant]
     Active Substance: DIAZEPAM
     Indication: Hodgkin^s disease nodular sclerosis
     Dosage: 2 DOSAGE FORM, QD
     Route: 065
  9. METFORMIN HYDROCHLORIDE [Concomitant]
     Active Substance: METFORMIN HYDROCHLORIDE
     Indication: Type 2 diabetes mellitus
     Dosage: 1 DOSAGE FORM (120X500 OT)
     Route: 065
     Dates: start: 2017
  10. VOLTAREN [Concomitant]
     Active Substance: DICLOFENAC SODIUM
     Indication: Back pain
     Dosage: 1 DOSAGE FORM, QD (RETARD)
     Route: 065
  11. CARVEDILOL [Concomitant]
     Active Substance: CARVEDILOL
     Indication: Arrhythmia
     Dosage: 25 (UNIT UNKNOWN)
     Route: 065

REACTIONS (7)
  - Death [Fatal]
  - Choking [Unknown]
  - Dyspnoea [Unknown]
  - Cough [Unknown]
  - Rales [Unknown]
  - Tachycardia [Unknown]
  - Pallor [Unknown]

NARRATIVE: CASE EVENT DATE: 20230314
